FAERS Safety Report 24234259 (Version 2)
Quarter: 2024Q3

REPORT INFORMATION
  Report Type: Spontaneous
  Country: ZA (occurrence: None)
  Receive Date: 20240821
  Receipt Date: 20240918
  Transmission Date: 20241016
  Serious: Yes (Disabling)
  Sender: ASTRAZENECA
  Company Number: 2024A185195

PATIENT
  Age: 51 Year
  Sex: Female

DRUGS (8)
  1. DAPAGLIFLOZIN PROPANEDIOL [Suspect]
     Active Substance: DAPAGLIFLOZIN PROPANEDIOL
     Route: 048
  2. GLICLAZIDE [Concomitant]
     Active Substance: GLICLAZIDE
  3. GLUCOPHAGE XR [Concomitant]
     Active Substance: METFORMIN HYDROCHLORIDE
  4. KLARITHRAN MR [Concomitant]
  5. MONTELUKAST SODIUM [Concomitant]
     Active Substance: MONTELUKAST\MONTELUKAST SODIUM
  6. TAMYGEN [Concomitant]
  7. STOPAYNE [Concomitant]
  8. BETADEXAMINE [Concomitant]

REACTIONS (1)
  - Deafness [Unknown]
